FAERS Safety Report 16747591 (Version 2)
Quarter: 2020Q1

REPORT INFORMATION
  Report Type: Spontaneous
  Country: GB (occurrence: GB)
  Receive Date: 20190827
  Receipt Date: 20200121
  Transmission Date: 20200409
  Serious: Yes (Death, Hospitalization)
  Sender: FDA-Public Use
  Company Number: GB-TEVA-2019-GB-1097353

PATIENT
  Age: 50 Year
  Sex: Female

DRUGS (6)
  1. TINZAPARIN [Concomitant]
     Active Substance: TINZAPARIN
  2. CYCLIZINE [Concomitant]
     Active Substance: CYCLIZINE
  3. GABAPENTIN. [Suspect]
     Active Substance: GABAPENTIN
     Indication: NEURALGIA
     Dosage: 2400MG
     Route: 048
     Dates: start: 20190220, end: 20190305
  4. DEXAMETHASONE. [Concomitant]
     Active Substance: DEXAMETHASONE
  5. DICLOFENAC [Concomitant]
     Active Substance: DICLOFENAC
     Dosage: FOR SEVERAL WEEKS BEFORE ADMISSION
  6. METHADONE [Concomitant]
     Active Substance: METHADONE HYDROCHLORIDE

REACTIONS (11)
  - Acute respiratory failure [Fatal]
  - Blood pressure decreased [Fatal]
  - Toxicity to various agents [Fatal]
  - Dyskinesia [Fatal]
  - Somnolence [Fatal]
  - Speech disorder [Fatal]
  - Coordination abnormal [Fatal]
  - Oxygen saturation decreased [Fatal]
  - Vomiting [Fatal]
  - Pyrexia [Fatal]
  - Renal impairment [Fatal]

NARRATIVE: CASE EVENT DATE: 20190305
